FAERS Safety Report 18760598 (Version 1)
Quarter: 2021Q1

REPORT INFORMATION
  Report Type: Spontaneous
  Country: US (occurrence: US)
  Receive Date: 20210119
  Receipt Date: 20210119
  Transmission Date: 20210419
  Serious: No
  Sender: FDA-Public Use
  Company Number: US-ROCHE-2490074

PATIENT

DRUGS (8)
  1. METHOTREXATE SODIUM. [Concomitant]
     Active Substance: METHOTREXATE SODIUM
  2. FOLIC ACID. [Concomitant]
     Active Substance: FOLIC ACID
  3. ACTEMRA [Suspect]
     Active Substance: TOCILIZUMAB
     Indication: PRODUCT USED FOR UNKNOWN INDICATION
     Route: 065
  4. DOXYCYCLINE HYCLATE. [Concomitant]
     Active Substance: DOXYCYCLINE HYCLATE
  5. PREDNISONE. [Concomitant]
     Active Substance: PREDNISONE
  6. RITUXAN [Suspect]
     Active Substance: RITUXIMAB
     Indication: PRODUCT USED FOR UNKNOWN INDICATION
     Route: 065
  7. LISINOPRIL. [Concomitant]
     Active Substance: LISINOPRIL
  8. XELJANZ [Concomitant]
     Active Substance: TOFACITINIB CITRATE

REACTIONS (2)
  - Hypersensitivity [Unknown]
  - Injection site reaction [Unknown]
